FAERS Safety Report 7316448-1 (Version None)
Quarter: 2011Q1

REPORT INFORMATION
  Report Type: 
  Country: None (occurrence: None)
  Receive Date: 20110225
  Receipt Date: 20110217
  Transmission Date: 20110831
  Serious: Yes (Disabling)
  Sender: FDA-Public Use
  Company Number: CA-ALLERGAN-1102486US

PATIENT
  Age: 77 Year
  Sex: Male

DRUGS (1)
  1. LUMIGAN [Suspect]
     Indication: GLAUCOMA
     Dosage: 1 GTT, QHS
     Dates: start: 20080101

REACTIONS (3)
  - DIPLOPIA [None]
  - EYE INFLAMMATION [None]
  - VISUAL ACUITY REDUCED [None]
